FAERS Safety Report 25595627 (Version 1)
Quarter: 2025Q3

REPORT INFORMATION
  Report Type: Report from Study
  Country: EU (occurrence: EU)
  Receive Date: 20250723
  Receipt Date: 20250723
  Transmission Date: 20251020
  Serious: Yes (Hospitalization)
  Sender: AMGEN
  Company Number: EU-ROCHE-10000333486

PATIENT

DRUGS (4)
  1. PANITUMUMAB [Suspect]
     Active Substance: PANITUMUMAB
     Indication: Neoplasm malignant
     Dosage: UNK UNK, Q2WK (MOST RECENT DOSE (448MG)OF CANCER TREATMENTPRIOR TO AE/SAE ONSET 18-DEC-2024)
     Route: 040
     Dates: start: 20241205
  2. OXALIPLATIN [Suspect]
     Active Substance: OXALIPLATIN
     Indication: Neoplasm malignant
     Dosage: UNK UNK, Q2WK (MOST RECENT DOSE (448MG) OF CANCER TREATMENT PRIOR TO AE/SAE ONSET: 18-DEC-2024)
     Route: 040
     Dates: start: 20241205
  3. LEUCOVORIN CALCIUM [Suspect]
     Active Substance: LEUCOVORIN CALCIUM
     Indication: Neoplasm malignant
     Dosage: UNK, Q2WK (MOST RECENT DOSE OF CANCER TREATMENT PRIOR TO AE/SAE ONSE: 18-DEC-2024)
     Route: 040
     Dates: start: 20241205
  4. FLUOROURACIL [Suspect]
     Active Substance: FLUOROURACIL
     Indication: Neoplasm malignant
     Route: 040
     Dates: start: 20241205

REACTIONS (1)
  - Ileus [Recovered/Resolved]

NARRATIVE: CASE EVENT DATE: 20241220
